FAERS Safety Report 15090079 (Version 1)
Quarter: 2018Q2

REPORT INFORMATION
  Report Type: Spontaneous
  Country: RU (occurrence: RU)
  Receive Date: 20180629
  Receipt Date: 20180629
  Transmission Date: 20180711
  Serious: Yes (Other)
  Sender: FDA-Public Use
  Company Number: RU-ROCHE-2146786

PATIENT
  Age: 58 Year
  Sex: Male

DRUGS (6)
  1. DOXORUBICIN [Concomitant]
     Active Substance: DOXORUBICIN
     Indication: B-CELL LYMPHOMA
     Dosage: 8 CYCLES OF R-CHOP
     Route: 065
  2. VINCRISTINE [Concomitant]
     Active Substance: VINCRISTINE
     Indication: B-CELL LYMPHOMA
     Dosage: 8 CYCLES OF R-CHOP
     Route: 065
  3. RITUXIMAB. [Suspect]
     Active Substance: RITUXIMAB
     Indication: B-CELL LYMPHOMA
     Dosage: 8 CYCLES OF R-CHOP
     Route: 065
     Dates: start: 201012, end: 201106
  4. RITUXIMAB. [Suspect]
     Active Substance: RITUXIMAB
     Dosage: AS MAINTENANCE THERAPY
     Route: 065
     Dates: start: 201106, end: 201110
  5. CYCLOPHOSPHAMIDE. [Concomitant]
     Active Substance: CYCLOPHOSPHAMIDE
     Indication: B-CELL LYMPHOMA
     Dosage: 8 CYCLES OF R-CHOP
     Route: 065
  6. PREDNISONE. [Concomitant]
     Active Substance: PREDNISONE
     Indication: B-CELL LYMPHOMA
     Dosage: 8 CYCLES OF R-CHOP
     Route: 065

REACTIONS (1)
  - B-cell lymphoma recurrent [Recovered/Resolved]

NARRATIVE: CASE EVENT DATE: 201303
